FAERS Safety Report 4502918-8 (Version None)
Quarter: 2004Q4

REPORT INFORMATION
  Report Type: 
  Country: None (occurrence: None)
  Receive Date: 20041112
  Receipt Date: 20041029
  Transmission Date: 20050328
  Serious: No
  Sender: FDA-Public Use
  Company Number: 2004UW22395

PATIENT
  Age: 40 Year
  Sex: Male
  Weight: 84.821 kg

DRUGS (2)
  1. IRESSA [Suspect]
     Indication: NON-SMALL CELL LUNG CANCER
     Dosage: 250 MG QD PO
     Route: 048
     Dates: start: 20040801
  2. NAVELBINE [Concomitant]

REACTIONS (2)
  - HYPOXIA [None]
  - LUNG DISORDER [None]
